FAERS Safety Report 15160173 (Version 2)
Quarter: 2018Q3

REPORT INFORMATION
  Report Type: Report from Study
  Country: US (occurrence: US)
  Receive Date: 20180718
  Receipt Date: 20180810
  Transmission Date: 20181010
  Serious: Yes (Other)
  Sender: FDA-Public Use
  Company Number: US-JNJFOC-20180617370

PATIENT
  Age: 30 Year
  Sex: Female

DRUGS (5)
  1. CEFDINIR. [Concomitant]
     Active Substance: CEFDINIR
  2. TREMFYA [Suspect]
     Active Substance: GUSELKUMAB
     Indication: PSORIASIS
     Route: 058
     Dates: start: 20180605
  3. FLUOXETINE [Concomitant]
     Active Substance: FLUOXETINE HYDROCHLORIDE
  4. MONTELUCAST [Concomitant]
     Active Substance: MONTELUKAST SODIUM
  5. FLUTICASONE. [Concomitant]
     Active Substance: FLUTICASONE

REACTIONS (6)
  - Eye haemorrhage [Recovered/Resolved]
  - Abdominal pain upper [Recovered/Resolved]
  - Nausea [Recovered/Resolved]
  - Decreased appetite [Unknown]
  - Oesophageal pain [Recovered/Resolved]
  - Diarrhoea [Recovered/Resolved]

NARRATIVE: CASE EVENT DATE: 20180606
